FAERS Safety Report 5368485-4 (Version None)
Quarter: 2007Q2

REPORT INFORMATION
  Report Type: 
  Country: None (occurrence: None)
  Receive Date: 20070625
  Receipt Date: 20070618
  Transmission Date: 20071010
  Serious: Yes (Other)
  Sender: FDA-Public Use
  Company Number: US-BRACCO-BDI-009361

PATIENT
  Age: 60 Year
  Sex: Female
  Weight: 63 kg

DRUGS (7)
  1. MULTIHANCE [Suspect]
     Indication: MASS
     Route: 042
     Dates: start: 20070327, end: 20070327
  2. MULTIHANCE [Suspect]
     Route: 042
     Dates: start: 20070327, end: 20070327
  3. TAMOXIFEN CITRATE [Concomitant]
     Route: 050
  4. SYNTHROID [Concomitant]
     Route: 050
  5. EFFEXOR [Concomitant]
     Route: 050
  6. FOSAMAX ONCE WEEKLY [Concomitant]
     Dosage: WEEKLY
     Route: 050
  7. MULTIVITAMIN [Concomitant]
     Route: 050

REACTIONS (10)
  - BLOOD PRESSURE DECREASED [None]
  - DEPRESSED LEVEL OF CONSCIOUSNESS [None]
  - DYSPNOEA [None]
  - FEELING ABNORMAL [None]
  - FLUSHING [None]
  - HEART RATE DECREASED [None]
  - HYPERHIDROSIS [None]
  - NAUSEA [None]
  - RESPIRATORY ARREST [None]
  - STARING [None]
